FAERS Safety Report 12363297 (Version 1)
Quarter: 2016Q2

REPORT INFORMATION
  Report Type: Spontaneous
  Country: US (occurrence: None)
  Receive Date: 20160512
  Receipt Date: 20160512
  Transmission Date: 20160815
  Serious: No
  Sender: FDA-Public Use
  Company Number: None

PATIENT
  Age: 61 Year
  Sex: Male

DRUGS (1)
  1. HUMIRA [Suspect]
     Active Substance: ADALIMUMAB
     Indication: RHEUMATOID ARTHRITIS
     Dosage: 40MG/0.8ML EVERY OTHER WEEK SUBCUTANEOUSLY
     Route: 058
     Dates: start: 20150921

REACTIONS (2)
  - Drug dose omission [None]
  - Herpes zoster [None]

NARRATIVE: CASE EVENT DATE: 20160423
